FAERS Safety Report 9684171 (Version 2)
Quarter: 2013Q4

REPORT INFORMATION
  Report Type: Spontaneous
  Country: US (occurrence: GB)
  Receive Date: 20131112
  Receipt Date: 20131204
  Transmission Date: 20140711
  Serious: Yes (Death)
  Sender: FDA-Public Use
  Company Number: GB-FRI-1000050950

PATIENT
  Age: 69 Year
  Sex: Male

DRUGS (1)
  1. ROFLUMILAST [Suspect]

REACTIONS (1)
  - Death [Fatal]
